FAERS Safety Report 12952047 (Version 2)
Quarter: 2017Q2

REPORT INFORMATION
  Report Type: Spontaneous
  Country: US (occurrence: US)
  Receive Date: 20161117
  Receipt Date: 20170517
  Transmission Date: 20170830
  Serious: No
  Sender: FDA-Public Use
  Company Number: US-SA-2016SA191307

PATIENT
  Age: 78 Year
  Sex: Male

DRUGS (12)
  1. TOUJEO [Suspect]
     Active Substance: INSULIN GLARGINE
     Indication: TYPE 2 DIABETES MELLITUS
     Dosage: DOSE:18 UNIT(S)
     Route: 065
     Dates: start: 201610
  2. SOLOSTAR [Concomitant]
     Active Substance: DEVICE
     Dates: start: 201610
  3. TOUJEO [Suspect]
     Active Substance: INSULIN GLARGINE
     Indication: TYPE 2 DIABETES MELLITUS
     Dosage: DOSE:40 UNIT(S)
     Route: 065
     Dates: end: 20161129
  4. INVOKANA [Concomitant]
     Active Substance: CANAGLIFLOZIN
  5. GLUCOTROL [Concomitant]
     Active Substance: GLIPIZIDE
  6. METFORMIN [Concomitant]
     Active Substance: METFORMIN HYDROCHLORIDE
  7. SOLOSTAR [Concomitant]
     Active Substance: DEVICE
     Dates: start: 201610
  8. TOUJEO [Suspect]
     Active Substance: INSULIN GLARGINE
     Indication: TYPE 2 DIABETES MELLITUS
     Dosage: DOSE:6 UNIT(S)
     Route: 065
     Dates: start: 20161010
  9. ONGLYZA [Concomitant]
     Active Substance: SAXAGLIPTIN HYDROCHLORIDE
  10. SOLOSTAR [Concomitant]
     Active Substance: DEVICE
     Dates: end: 20161129
  11. TOUJEO [Suspect]
     Active Substance: INSULIN GLARGINE
     Indication: TYPE 2 DIABETES MELLITUS
     Dosage: DOSE:8 UNIT(S)
     Route: 065
     Dates: start: 201610
  12. SOLOSTAR [Concomitant]
     Active Substance: DEVICE
     Dates: start: 20161010

REACTIONS (7)
  - Glycosylated haemoglobin increased [Unknown]
  - Sleep disorder [Unknown]
  - Prostatic disorder [Unknown]
  - Drug ineffective [Unknown]
  - Feeling hot [Unknown]
  - Blood glucose increased [Unknown]
  - Paraesthesia [Unknown]

NARRATIVE: CASE EVENT DATE: 201610
